FAERS Safety Report 17327555 (Version 1)
Quarter: 2020Q1

REPORT INFORMATION
  Report Type: Report from Study
  Country: US (occurrence: US)
  Receive Date: 20200127
  Receipt Date: 20200127
  Transmission Date: 20200409
  Serious: Yes (Hospitalization)
  Sender: FDA-Public Use
  Company Number: US-JNJFOC-20190814634

PATIENT
  Age: 32 Year
  Sex: Female
  Weight: 65.77 kg

DRUGS (7)
  1. SULFASALAZINE. [Suspect]
     Active Substance: SULFASALAZINE
     Indication: CROHN^S DISEASE
     Route: 065
     Dates: start: 20170701, end: 20190130
  2. TYLENOL [Concomitant]
     Active Substance: ACETAMINOPHEN
     Route: 048
     Dates: start: 20191017, end: 20191111
  3. CELESTONE [Concomitant]
     Active Substance: BETAMETHASONE
     Dates: start: 20190921
  4. USTEKINUMAB [Suspect]
     Active Substance: USTEKINUMAB
     Indication: CROHN^S DISEASE
     Dosage: FROM 6 YEARS
     Route: 058
     Dates: start: 20180415, end: 20191111
  5. TYLENOL [Concomitant]
     Active Substance: ACETAMINOPHEN
     Indication: HEADACHE
     Route: 048
     Dates: start: 20190221, end: 20190809
  6. PRENATAL VITAMINS                  /02014401/ [Suspect]
     Active Substance: VITAMINS
     Route: 048
     Dates: start: 20181015
  7. VITAMIN C                          /00008004/ [Concomitant]
     Route: 048
     Dates: start: 20190221

REACTIONS (5)
  - Fall [Recovered/Resolved]
  - Uterine contractions abnormal [Unknown]
  - Exposure during pregnancy [Recovered/Resolved]
  - Hypertension [Recovered/Resolved]
  - Gastroenteritis [Recovered/Resolved]

NARRATIVE: CASE EVENT DATE: 20190221
